FAERS Safety Report 8064632-4 (Version None)
Quarter: 2012Q1

REPORT INFORMATION
  Report Type: 
  Country: None (occurrence: None)
  Receive Date: 20120123
  Receipt Date: 20120112
  Transmission Date: 20120608
  Serious: Yes (Hospitalization)
  Sender: FDA-Public Use
  Company Number: FR-ASTRAZENECA-2012SE03140

PATIENT
  Sex: Male

DRUGS (1)
  1. QUETIAPINE FUMARATE [Suspect]
     Route: 048
     Dates: start: 20110101

REACTIONS (1)
  - ATYPICAL BENIGN PARTIAL EPILEPSY [None]
